FAERS Safety Report 5673985-3 (Version None)
Quarter: 2008Q1

REPORT INFORMATION
  Report Type: 
  Country: None (occurrence: None)
  Receive Date: 20080319
  Receipt Date: 20080319
  Transmission Date: 20080703
  Serious: No
  Sender: FDA-Public Use
  Company Number: None

PATIENT
  Sex: Female

DRUGS (2)
  1. TECHNI-CARE NDC # 46706-222-05 [Suspect]
     Indication: PREOPERATIVE CARE
     Dosage: PRE-SURGICAL PREP  TOPICAL
     Route: 061
     Dates: start: 20070110
  2. BACITRACIN [Concomitant]

REACTIONS (3)
  - ALOPECIA [None]
  - CAUSTIC INJURY [None]
  - SCAR [None]
